FAERS Safety Report 7352012-6 (Version None)
Quarter: 2011Q1

REPORT INFORMATION
  Report Type: 
  Country: None (occurrence: None)
  Receive Date: 20110315
  Receipt Date: 20110310
  Transmission Date: 20110831
  Serious: No
  Sender: FDA-Public Use
  Company Number: US-PFIZER INC-2011053624

PATIENT
  Sex: Female

DRUGS (1)
  1. CALAN [Suspect]
     Dosage: 180 MG, 2X/DAY
     Route: 048

REACTIONS (2)
  - JOINT SWELLING [None]
  - CONSTIPATION [None]
